FAERS Safety Report 8405115-9 (Version None)
Quarter: 2012Q2

REPORT INFORMATION
  Report Type: 
  Country: None (occurrence: None)
  Receive Date: 20120602
  Receipt Date: 20120530
  Transmission Date: 20120825
  Serious: Yes (Hospitalization)
  Sender: FDA-Public Use
  Company Number: CH-BAYER-2012-053002

PATIENT
  Sex: Male

DRUGS (8)
  1. ASPIRIN [Suspect]
     Dosage: 100 MG, QD
     Dates: end: 20111201
  2. METFORMIN HCL [Concomitant]
     Dosage: 1000 MG, BID
  3. LORAZEPAM [Concomitant]
  4. LIQUAEMIN INJ [Suspect]
     Dosage: 20000 IU, QD
     Route: 041
     Dates: start: 20111201, end: 20111201
  5. PLAVIX [Suspect]
     Dosage: 75 MG, QD
     Dates: end: 20111201
  6. ATACAND [Concomitant]
     Dosage: 16 MG, QD
  7. LEVEMIR [Concomitant]
     Route: 058
  8. TORSEMIDE [Concomitant]
     Dosage: 5 MG, QD

REACTIONS (3)
  - MUSCLE HAEMORRHAGE [None]
  - ANAEMIA [None]
  - HYPOTENSION [None]
